FAERS Safety Report 24275971 (Version 2)
Quarter: 2024Q4

REPORT INFORMATION
  Report Type: Spontaneous
  Country: DE (occurrence: DE)
  Receive Date: 20240903
  Receipt Date: 20241002
  Transmission Date: 20250115
  Serious: Yes (Life-Threatening, Other)
  Sender: TAKEDA
  Company Number: None

PATIENT
  Age: 18 Year
  Sex: Female

DRUGS (7)
  1. ENTYVIO [Suspect]
     Active Substance: VEDOLIZUMAB
     Indication: Colitis ulcerative
     Dosage: UNK
     Route: 065
     Dates: start: 202211, end: 202306
  2. AMINOSALICYLIC ACID [Suspect]
     Active Substance: AMINOSALICYLIC ACID
     Indication: Colitis ulcerative
     Dosage: UNK
     Route: 065
  3. HUMIRA [Suspect]
     Active Substance: ADALIMUMAB
     Indication: Rheumatoid arthritis
     Dosage: UNK
     Route: 065
     Dates: start: 202104, end: 202111
  4. STELARA [Suspect]
     Active Substance: USTEKINUMAB
     Indication: Crohn^s disease
     Dosage: UNK
     Route: 065
     Dates: start: 202111, end: 202211
  5. FILGOTINIB [Suspect]
     Active Substance: FILGOTINIB
     Indication: Product used for unknown indication
     Dosage: UNK
     Route: 065
     Dates: start: 202306, end: 202311
  6. RINVOQ [Suspect]
     Active Substance: UPADACITINIB
     Indication: Product used for unknown indication
     Dosage: 45 MILLIGRAM
     Route: 065
     Dates: start: 202311, end: 202401
  7. RINVOQ [Suspect]
     Active Substance: UPADACITINIB
     Dosage: 30 MILLIGRAM
     Route: 065
     Dates: start: 202401

REACTIONS (5)
  - Depression [Not Recovered/Not Resolved]
  - Weight bearing difficulty [Not Recovered/Not Resolved]
  - Asthenia [Not Recovered/Not Resolved]
  - Dissociation [Not Recovered/Not Resolved]
  - Dissociative disorder [Not Recovered/Not Resolved]

NARRATIVE: CASE EVENT DATE: 20240301
